FAERS Safety Report 25698889 (Version 1)
Quarter: 2025Q3

REPORT INFORMATION
  Report Type: Spontaneous
  Country: US (occurrence: US)
  Receive Date: 20250819
  Receipt Date: 20250819
  Transmission Date: 20251020
  Serious: No
  Sender: AMGEN
  Company Number: US-AMGEN-USASP2025162933

PATIENT
  Age: 70 Year
  Sex: Male

DRUGS (7)
  1. OTEZLA [Suspect]
     Active Substance: APREMILAST
     Indication: Psoriasis
     Dosage: 30 MILLIGRAM, BID
     Route: 048
     Dates: start: 20250227
  2. RITUXIMAB [Concomitant]
     Active Substance: RITUXIMAB
  3. NAPROXEN [Concomitant]
     Active Substance: NAPROXEN
  4. TYLENOL [Concomitant]
     Active Substance: ACETAMINOPHEN
  5. HERBALS\TURMERIC [Concomitant]
     Active Substance: HERBALS\TURMERIC
  6. VITAMIN B12 [Concomitant]
     Active Substance: CYANOCOBALAMIN
  7. VITAMIN D [Concomitant]
     Active Substance: VITAMIN D NOS

REACTIONS (2)
  - Arthritis [Not Recovered/Not Resolved]
  - Headache [Not Recovered/Not Resolved]

NARRATIVE: CASE EVENT DATE: 20250701
